FAERS Safety Report 8072631-1 (Version None)
Quarter: 2012Q1

REPORT INFORMATION
  Report Type: 
  Country: None (occurrence: None)
  Receive Date: 20120126
  Receipt Date: 20120118
  Transmission Date: 20120608
  Serious: Yes (Hospitalization, Other)
  Sender: FDA-Public Use
  Company Number: US-BAYER-2011-040250

PATIENT
  Age: 26 Year
  Sex: Female
  Weight: 90.703 kg

DRUGS (6)
  1. CEPHALEXIN [Concomitant]
  2. YAZ [Suspect]
     Dosage: UNK
     Route: 048
     Dates: start: 20081028, end: 20090101
  3. LORTAB [Concomitant]
  4. CIPROFLOXACIN [Concomitant]
  5. ANTIBIOTICS [Concomitant]
  6. YASMIN [Suspect]
     Dosage: UNK
     Route: 048
     Dates: start: 20090101, end: 20090401

REACTIONS (11)
  - PULMONARY EMBOLISM [None]
  - ANXIETY [None]
  - THROMBOSIS [None]
  - PAIN [None]
  - ANHEDONIA [None]
  - FEELING GUILTY [None]
  - MENTAL DISORDER [None]
  - INSOMNIA [None]
  - INJURY [None]
  - MUSCULOSKELETAL CHEST PAIN [None]
  - DYSPNOEA [None]
